FAERS Safety Report 13344040 (Version 1)
Quarter: 2017Q1

REPORT INFORMATION
  Report Type: Spontaneous
  Country: JP (occurrence: JP)
  Receive Date: 20170316
  Receipt Date: 20170316
  Transmission Date: 20170428
  Serious: Yes (Other)
  Sender: FDA-Public Use
  Company Number: JP-009507513-1702JPN000354J

PATIENT
  Age: 84 Year
  Sex: Female
  Weight: 58 kg

DRUGS (15)
  1. OLMETEC [Concomitant]
     Active Substance: OLMESARTAN MEDOXOMIL
     Dosage: 20 MG, QD
     Route: 048
  2. PLAVIX [Concomitant]
     Active Substance: CLOPIDOGREL BISULFATE
     Dosage: 25 MG, QD
     Route: 048
  3. GRAZYNA TABLETS 50MG [Suspect]
     Active Substance: GRAZOPREVIR
     Indication: CHRONIC HEPATITIS C
     Dosage: 100 MG, QD
     Route: 048
     Dates: start: 20170120, end: 20170202
  4. TRAZENTA [Concomitant]
     Active Substance: LINAGLIPTIN
     Dosage: 5 MG, QD
     Route: 048
  5. SENNOSIDE [Concomitant]
     Active Substance: SENNOSIDES
     Dosage: 24 MG, QD
     Route: 048
  6. ERELSA TABLETS 50MG [Suspect]
     Active Substance: ELBASVIR
     Indication: CHRONIC HEPATITIS C
     Dosage: 50 MG, QD
     Route: 048
     Dates: start: 20170120, end: 20170202
  7. PITAVASTATIN CALCIUM [Concomitant]
     Active Substance: PITAVASTATIN CALCIUM
     Dosage: 1 MG, QD
     Route: 048
  8. INSULIN GLARGINE(GENETICAL RECOMBINATION) [Concomitant]
     Dosage: 23 IU, UNK
     Route: 058
  9. URSODEOXYCHOLIC ACID [Concomitant]
     Active Substance: URSODIOL
     Dosage: 200 MG, QD
     Route: 048
  10. MOSAPRIDE CITRATE HYDRATE [Concomitant]
     Active Substance: MOSAPRIDE CITRATE DIHYDRATE
     Dosage: 10 MG, QD
     Route: 048
  11. RILMAZAFONE HYDROCHLORIDE HYDRATE [Concomitant]
     Active Substance: RILMAZAFONE HYDROCHLORIDE
     Dosage: 2 MG, QD
     Route: 048
  12. ZOPICLONE [Concomitant]
     Active Substance: ZOPICLONE
     Dosage: 20 MG, QD
     Route: 048
  13. CARVEDILOL. [Concomitant]
     Active Substance: CARVEDILOL
     Dosage: 2.5 MG, QD
     Route: 048
  14. RABEPRAZOLE NA [Concomitant]
     Active Substance: RABEPRAZOLE SODIUM
     Dosage: 10 MG, QD
     Route: 048
  15. TRAZODONE HYDROCHLORIDE. [Concomitant]
     Active Substance: TRAZODONE HYDROCHLORIDE
     Dosage: 100 MG, QD
     Route: 048

REACTIONS (1)
  - Drug eruption [Recovering/Resolving]

NARRATIVE: CASE EVENT DATE: 20170120
